FAERS Safety Report 15839057 (Version 4)
Quarter: 2019Q3

REPORT INFORMATION
  Report Type: Report from Study
  Country: US (occurrence: US)
  Receive Date: 20190117
  Receipt Date: 20190904
  Transmission Date: 20191004
  Serious: Yes (Death, Hospitalization, Disabling, Other)
  Sender: FDA-Public Use
  Company Number: US-GILEAD-2018-0380905

PATIENT
  Age: 39 Year
  Sex: Male
  Weight: 95.4 kg

DRUGS (27)
  1. ALLOPURINOL. [Concomitant]
     Active Substance: ALLOPURINOL
  2. ZARXIO [Concomitant]
     Active Substance: FILGRASTIM-SNDZ
  3. METHOCARBAMOL. [Concomitant]
     Active Substance: METHOCARBAMOL
     Dosage: 500,MG,THREE TIMES DAILY
     Route: 048
     Dates: start: 20181212, end: 20181216
  4. DOCUSATE [Concomitant]
     Active Substance: DOCUSATE
     Dosage: 100,MG,TWICE DAILY
     Route: 048
     Dates: start: 20181211, end: 20181216
  5. MENTHOL. [Concomitant]
     Active Substance: MENTHOL
  6. SEVELAMER [Concomitant]
     Active Substance: SEVELAMER
  7. AXICABTAGENE CILOLEUCEL [Suspect]
     Active Substance: AXICABTAGENE CILOLEUCEL
     Indication: B-CELL LYMPHOMA
     Dosage: 68 ML, ONCE
     Route: 042
     Dates: start: 20181210, end: 20181210
  8. DEXAMETHASONE. [Concomitant]
     Active Substance: DEXAMETHASONE
  9. COMPAZINE [Concomitant]
     Active Substance: PROCHLORPERAZINE MALEATE
  10. PANTOPRAZOLE [Concomitant]
     Active Substance: PANTOPRAZOLE
     Dosage: 40,MG,DAILY
     Route: 048
     Dates: start: 20181210, end: 20181213
  11. KYTRIL [Concomitant]
     Active Substance: GRANISETRON HYDROCHLORIDE
  12. DIPHENHYDRAMINE. [Concomitant]
     Active Substance: DIPHENHYDRAMINE
     Dosage: 50,MG,FOUR TIMES DAILY
     Route: 048
     Dates: start: 20181216, end: 20181216
  13. OXYCODONE [Concomitant]
     Active Substance: OXYCODONE
     Dosage: 10,MG,AS NECESSARY
     Route: 048
     Dates: start: 20181210, end: 20181213
  14. NORMAL SALINE [Concomitant]
     Active Substance: SODIUM CHLORIDE
     Dosage: UNK
     Dates: start: 20181210, end: 20181214
  15. OXYCODONE [Concomitant]
     Active Substance: OXYCODONE
     Dosage: 15,MG,AS NECESSARY
     Route: 048
     Dates: start: 20181213, end: 20181214
  16. MELATONIN [Concomitant]
     Active Substance: MELATONIN
     Dosage: 5,MG,DAILY
     Route: 048
     Dates: start: 20181211, end: 20181215
  17. DIPHENHYDRAMINE. [Concomitant]
     Active Substance: DIPHENHYDRAMINE
     Dosage: 50,MG,AS NECESSARY
     Route: 048
     Dates: start: 20181210, end: 20181210
  18. FLUDARABINE [Suspect]
     Active Substance: FLUDARABINE PHOSPHATE
     Indication: BONE MARROW CONDITIONING REGIMEN
     Dosage: 30 MG/M2, QD
     Route: 042
     Dates: start: 20181205, end: 20181207
  19. NORMAL SALINE [Concomitant]
     Active Substance: SODIUM CHLORIDE
     Dosage: 1 L
     Route: 042
     Dates: start: 20181213
  20. CYCLOPHOSPHAMIDE. [Suspect]
     Active Substance: CYCLOPHOSPHAMIDE
     Indication: BONE MARROW CONDITIONING REGIMEN
     Dosage: 500 MG/M2, QD
     Route: 042
     Dates: start: 20181205, end: 20181207
  21. ZOFRAN [Concomitant]
     Active Substance: ONDANSETRON HYDROCHLORIDE
  22. OXYCODONE [Concomitant]
     Active Substance: OXYCODONE
     Dosage: 15,MG,AS NECESSARY
     Route: 048
     Dates: start: 20181216, end: 20181217
  23. LIDOCAINE. [Concomitant]
     Active Substance: LIDOCAINE
     Dosage: 5,%,DAILY
     Route: 050
     Dates: start: 20181216, end: 20181217
  24. NORMAL SALINE [Concomitant]
     Active Substance: SODIUM CHLORIDE
     Dosage: UNK, PRN
     Route: 042
  25. PROCHLORPERAZINE. [Concomitant]
     Active Substance: PROCHLORPERAZINE
     Dosage: 5,MG,AS NECESSARY
     Route: 041
     Dates: start: 20181209, end: 20181209
  26. MESNA. [Suspect]
     Active Substance: MESNA
     Indication: BONE MARROW CONDITIONING REGIMEN
     Dosage: 500
     Route: 042
     Dates: start: 20181205, end: 20181205
  27. POLYETHYLENE GLYCOL [Concomitant]
     Active Substance: POLYETHYLENE GLYCOLS
     Dosage: 17,G,DAILY
     Route: 048
     Dates: start: 20181211, end: 20181216

REACTIONS (6)
  - Multiple organ dysfunction syndrome [Fatal]
  - Pyrexia [Unknown]
  - Hypoxia [Unknown]
  - Sinus tachycardia [Recovered/Resolved]
  - Cytokine release syndrome [Fatal]
  - Hypotension [Unknown]

NARRATIVE: CASE EVENT DATE: 20181214
